FAERS Safety Report 11304044 (Version 1)
Quarter: 2015Q3

REPORT INFORMATION
  Report Type: Spontaneous
  Country: US (occurrence: US)
  Receive Date: 20150723
  Receipt Date: 20150723
  Transmission Date: 20151125
  Serious: No
  Sender: FDA-Public Use
  Company Number: US-JNJFOC-20150303383

PATIENT
  Sex: Male

DRUGS (2)
  1. PEPCID AC [Suspect]
     Active Substance: FAMOTIDINE
     Indication: DYSPEPSIA
     Dosage: 10 MG, 1 - 2 TABLETS
     Route: 048
  2. PEPCID AC [Suspect]
     Active Substance: FAMOTIDINE
     Route: 048

REACTIONS (1)
  - Drug ineffective [Unknown]
